FAERS Safety Report 12935449 (Version 1)
Quarter: 2016Q4

REPORT INFORMATION
  Report Type: Spontaneous
  Country: US (occurrence: US)
  Receive Date: 20161114
  Receipt Date: 20161114
  Transmission Date: 20170207
  Serious: No
  Sender: FDA-Public Use
  Company Number: US-JAZZ-2016-US-018633

PATIENT
  Sex: Female

DRUGS (13)
  1. XYREM [Suspect]
     Active Substance: SODIUM OXYBATE
     Indication: CATAPLEXY
     Dosage: DOSE ADJUSTMENTS
     Route: 048
     Dates: start: 201503, end: 201608
  2. NITROFURANTOIN. [Concomitant]
     Active Substance: NITROFURANTOIN
  3. XYREM [Suspect]
     Active Substance: SODIUM OXYBATE
     Indication: NARCOLEPSY
     Dosage: 2.25 G, BID
     Route: 048
     Dates: start: 201503, end: 201503
  4. XYREM [Suspect]
     Active Substance: SODIUM OXYBATE
     Dosage: 1 G, THIRD DOSE
     Route: 048
     Dates: start: 201608
  5. IBUPROFEN. [Concomitant]
     Active Substance: IBUPROFEN
  6. XYREM [Suspect]
     Active Substance: SODIUM OXYBATE
     Dosage: 4 G, FIRST DOSE
     Route: 048
     Dates: start: 201608
  7. XYREM [Suspect]
     Active Substance: SODIUM OXYBATE
     Dosage: 4 G, SECOND DOSE
     Route: 048
     Dates: start: 201608
  8. PROVIGIL [Concomitant]
     Active Substance: MODAFINIL
  9. SYNTHROID [Concomitant]
     Active Substance: LEVOTHYROXINE SODIUM
  10. CAMBIA [Concomitant]
     Active Substance: DICLOFENAC POTASSIUM
  11. NUVIGIL [Concomitant]
     Active Substance: ARMODAFINIL
  12. NAPROSYN [Concomitant]
     Active Substance: NAPROXEN
  13. NUVARING [Concomitant]
     Active Substance: ETHINYL ESTRADIOL\ETONOGESTREL

REACTIONS (6)
  - Cluster headache [Recovering/Resolving]
  - Unevaluable event [Unknown]
  - Anxiety [Not Recovered/Not Resolved]
  - Drug ineffective [Unknown]
  - Overdose [Unknown]
  - Intentional product use issue [Unknown]
